FAERS Safety Report 13932146 (Version 3)
Quarter: 2018Q2

REPORT INFORMATION
  Report Type: Spontaneous
  Country: US (occurrence: US)
  Receive Date: 20170904
  Receipt Date: 20180628
  Transmission Date: 20180711
  Serious: No
  Sender: FDA-Public Use
  Company Number: US-PFIZER INC-2017378134

PATIENT
  Age: 70 Year
  Sex: Female

DRUGS (2)
  1. EUCRISA [Suspect]
     Active Substance: CRISABOROLE
     Indication: RASH
     Dosage: 2X/DAY, (APPLY TO AFFECTED AREAS OF FACE)
  2. EUCRISA [Suspect]
     Active Substance: CRISABOROLE
     Indication: SKIN IRRITATION

REACTIONS (2)
  - Drug ineffective [Not Recovered/Not Resolved]
  - Rosacea [Unknown]
